FAERS Safety Report 17524362 (Version 1)
Quarter: 2020Q1

REPORT INFORMATION
  Report Type: Spontaneous
  Country: US (occurrence: US)
  Receive Date: 20200303
  Receipt Date: 20200303
  Transmission Date: 20200409
  Serious: Yes (Hospitalization)
  Sender: FDA-Public Use
  Company Number: None

PATIENT
  Sex: Female
  Weight: 56.7 kg

DRUGS (2)
  1. FASLODEX [Suspect]
     Active Substance: FULVESTRANT
  2. PALBOCICLIB (PD-0332991) [Concomitant]
     Active Substance: PALBOCICLIB

REACTIONS (7)
  - Abdominal pain [None]
  - Tachycardia [None]
  - Sepsis [None]
  - Leukocytosis [None]
  - Urinary tract infection [None]
  - Pyrexia [None]
  - Asthenia [None]

NARRATIVE: CASE EVENT DATE: 20200223
